FAERS Safety Report 16661631 (Version 1)
Quarter: 2019Q3

REPORT INFORMATION
  Report Type: Spontaneous
  Country: US (occurrence: US)
  Receive Date: 20190802
  Receipt Date: 20190802
  Transmission Date: 20191004
  Serious: No
  Sender: FDA-Public Use
  Company Number: US-TEVA-2019-US-1085160

PATIENT
  Sex: Female

DRUGS (3)
  1. LISINOPRIL. [Concomitant]
     Active Substance: LISINOPRIL
  2. CLONIDINE. [Suspect]
     Active Substance: CLONIDINE
     Dosage: .1 MILLIGRAM DAILY;
     Route: 065
  3. METOPROLOL. [Concomitant]
     Active Substance: METOPROLOL

REACTIONS (3)
  - Drug ineffective [Unknown]
  - Blood pressure increased [Recovered/Resolved]
  - Withdrawal syndrome [Recovered/Resolved]
